FAERS Safety Report 14880991 (Version 1)
Quarter: 2018Q2

REPORT INFORMATION
  Report Type: Spontaneous
  Country: CH (occurrence: CH)
  Receive Date: 20180511
  Receipt Date: 20180511
  Transmission Date: 20180711
  Serious: Yes (Hospitalization)
  Sender: FDA-Public Use
  Company Number: CH-SA-2018SA126363

PATIENT
  Sex: Male

DRUGS (22)
  1. PREDNISONE. [Concomitant]
     Active Substance: PREDNISONE
     Route: 065
     Dates: start: 201708
  2. MOVICOL [Concomitant]
     Active Substance: POLYETHYLENE GLYCOL 3350\POTASSIUM CHLORIDE\SODIUM BICARBONATE\SODIUM CHLORIDE
     Route: 065
     Dates: start: 201708
  3. BENERVA [Concomitant]
     Active Substance: THIAMINE
     Route: 065
     Dates: start: 201708
  4. TAZOBAC [Concomitant]
     Active Substance: PIPERACILLIN SODIUM\TAZOBACTAM SODIUM
     Route: 065
     Dates: start: 20180212, end: 20180212
  5. COAPROVEL [Suspect]
     Active Substance: HYDROCHLOROTHIAZIDE\IRBESARTAN
     Route: 048
     Dates: end: 201708
  6. ANXIOLIT [Concomitant]
     Active Substance: OXAZEPAM
     Route: 065
     Dates: start: 201708
  7. COLCHICINE. [Concomitant]
     Active Substance: COLCHICINE
     Route: 065
     Dates: start: 20180214, end: 20180218
  8. ZYLORIC [Concomitant]
     Active Substance: ALLOPURINOL
     Route: 065
     Dates: start: 201708
  9. IBUPROFEN. [Concomitant]
     Active Substance: IBUPROFEN
     Route: 065
     Dates: end: 201708
  10. CO-AMOXI [Concomitant]
     Active Substance: AMOXICILLIN\CLAVULANATE POTASSIUM
     Route: 065
     Dates: start: 20180212, end: 20180219
  11. LAXOBERON [Concomitant]
     Active Substance: SODIUM PICOSULFATE
  12. TOREM [Concomitant]
     Active Substance: TORSEMIDE
     Route: 065
     Dates: end: 201708
  13. ASPIRIN CARDIO [Concomitant]
     Active Substance: ASPIRIN
  14. TEMGESIC [Concomitant]
     Active Substance: BUPRENORPHINE HYDROCHLORIDE
  15. AMLODIPINE [Concomitant]
     Active Substance: AMLODIPINE BESYLATE
     Route: 065
     Dates: start: 201708
  16. BELOC ZOK [Concomitant]
     Active Substance: METOPROLOL SUCCINATE
  17. BECOZYME [Concomitant]
     Active Substance: VITAMINS
     Route: 065
     Dates: start: 201708
  18. MULTAQ [Suspect]
     Active Substance: DRONEDARONE
     Route: 048
     Dates: start: 2012, end: 20180223
  19. CALCIPARINE [Concomitant]
     Active Substance: HEPARIN CALCIUM
     Route: 065
     Dates: start: 201708
  20. DAFALGAN [Concomitant]
     Active Substance: ACETAMINOPHEN
  21. PANTOPRAZOLE [Concomitant]
     Active Substance: PANTOPRAZOLE
     Route: 065
     Dates: end: 201708
  22. LASIX [Concomitant]
     Active Substance: FUROSEMIDE
     Route: 065
     Dates: start: 20180213, end: 20180214

REACTIONS (1)
  - Interstitial lung disease [Not Recovered/Not Resolved]

NARRATIVE: CASE EVENT DATE: 201707
